FAERS Safety Report 20700464 (Version 1)
Quarter: 2022Q2

REPORT INFORMATION
  Report Type: Spontaneous
  Country: FR (occurrence: FR)
  Receive Date: 20220412
  Receipt Date: 20220412
  Transmission Date: 20220721
  Serious: Yes (Death, Hospitalization, Other)
  Sender: FDA-Public Use
  Company Number: FR-ORPHANEU-2022000845

PATIENT
  Age: 67 Year

DRUGS (20)
  1. HYDROCORTISONE [Suspect]
     Active Substance: HYDROCORTISONE
     Dosage: 20 MILLIGRAM, QD, 10 MILLIGRAM, BID, 1-1-0
     Dates: start: 20210507
  2. HYDROCORTISONE [Suspect]
     Active Substance: HYDROCORTISONE
     Dosage: UNK, 10-10-0
     Dates: start: 20201214
  3. HYDROCORTISONE [Suspect]
     Active Substance: HYDROCORTISONE
     Dosage: 20 MILLIGRAM, QD, 10 MILLIGRAM, BID, 1-1-0
     Dates: start: 20210416
  4. HYDROCORTISONE [Suspect]
     Active Substance: HYDROCORTISONE
     Dosage: 20 MILLIGRAM, QD, 10 MILLIGRAM, BID, 1-1-0
     Dates: start: 20210104
  5. HYDROCORTISONE [Suspect]
     Active Substance: HYDROCORTISONE
     Dosage: UNK, 10-10-0 (UNITS UNSPECIFIED)
     Dates: start: 20200723
  6. OSILODROSTAT [Suspect]
     Active Substance: OSILODROSTAT
     Indication: Product used for unknown indication
     Dosage: UNK UNK, BID, 10-0-10 , BID
     Dates: start: 20200723, end: 202008
  7. OSILODROSTAT [Suspect]
     Active Substance: OSILODROSTAT
     Dosage: 10 MILLIGRAM, QD,IN THE EVENING (0-0-10 )
     Dates: start: 20201214, end: 20210104
  8. OSILODROSTAT [Suspect]
     Active Substance: OSILODROSTAT
     Dosage: 5 MILLIGRAM, QD, 5MG 0-0-1
     Dates: start: 20210104, end: 2021
  9. OSILODROSTAT [Suspect]
     Active Substance: OSILODROSTAT
     Dosage: 20 MILLIGRAM, QD, 10 MILLIGRAM, BID (1-0-1 )
     Dates: start: 20210416, end: 20210507
  10. OSILODROSTAT [Suspect]
     Active Substance: OSILODROSTAT
     Dosage: 10 MILLIGRAM, 1-0-2
     Dates: start: 20210507
  11. FLUOROURACIL [Concomitant]
     Active Substance: FLUOROURACIL
     Indication: Product used for unknown indication
     Dosage: UNK, SECOND TREATMENT
     Dates: start: 20200728
  12. FLUOROURACIL [Concomitant]
     Active Substance: FLUOROURACIL
     Dosage: UNK, THIRD TREATMENT
     Dates: start: 20200825
  13. FLUOROURACIL [Concomitant]
     Active Substance: FLUOROURACIL
     Dosage: UNK, FOURTH COURSE
     Dates: start: 202009
  14. FLUOROURACIL [Concomitant]
     Active Substance: FLUOROURACIL
     Dosage: UNK, FIFTH COURSE
     Dates: start: 20201020
  15. FLUOROURACIL [Concomitant]
     Active Substance: FLUOROURACIL
     Dosage: UNK, SIXTH COURSE
     Dates: start: 20201126
  16. DACARBAZINE [Concomitant]
     Active Substance: DACARBAZINE
     Indication: Product used for unknown indication
     Dosage: UNK, SECOND COURSE
     Dates: start: 20200728
  17. DACARBAZINE [Concomitant]
     Active Substance: DACARBAZINE
     Dosage: UNK, THIRD COURSE
     Dates: start: 20200825
  18. DACARBAZINE [Concomitant]
     Active Substance: DACARBAZINE
     Dosage: UNK, FOURTH COURSE
     Dates: start: 202009
  19. DACARBAZINE [Concomitant]
     Active Substance: DACARBAZINE
     Dosage: UNK, FIFTH COURSE
     Dates: start: 20201020
  20. DACARBAZINE [Concomitant]
     Active Substance: DACARBAZINE
     Dosage: UNK, SIXTH COURSE
     Dates: start: 20201126

REACTIONS (3)
  - COVID-19 [Fatal]
  - Gastrointestinal disorder [Unknown]
  - Adrenal insufficiency [Unknown]

NARRATIVE: CASE EVENT DATE: 20200812
